FAERS Safety Report 4470781-X (Version None)
Quarter: 2004Q4

REPORT INFORMATION
  Report Type: 
  Country: None (occurrence: None)
  Receive Date: 20041007
  Receipt Date: 20041007
  Transmission Date: 20050328
  Serious: Yes (Life-Threatening, Hospitalization)
  Sender: FDA-Public Use
  Company Number: None

PATIENT
  Age: 54 Year
  Sex: Female
  Weight: 61.2356 kg

DRUGS (2)
  1. VIOXX [Suspect]
     Indication: BACK PAIN
     Dosage: ONE  DAILY  ORAL
     Route: 048
     Dates: start: 20000102, end: 20041001
  2. VIOXX [Suspect]
     Indication: NECK PAIN
     Dosage: ONE  DAILY  ORAL
     Route: 048
     Dates: start: 20000102, end: 20041001

REACTIONS (1)
  - ATRIAL FIBRILLATION [None]
